FAERS Safety Report 4560265-2 (Version None)
Quarter: 2005Q1

REPORT INFORMATION
  Report Type: 
  Country: None (occurrence: None)
  Receive Date: 20050120
  Receipt Date: 20050120
  Transmission Date: 20050727
  Serious: Yes (Hospitalization, Other)
  Sender: FDA-Public Use
  Company Number: None

PATIENT
  Age: 41 Year
  Sex: Female
  Weight: 61.2356 kg

DRUGS (1)
  1. CEFZIL [Suspect]
     Dosage: PAST 8 DAYS

REACTIONS (6)
  - EAR DISCOMFORT [None]
  - ERYTHEMA [None]
  - EYELID OEDEMA [None]
  - PRURITUS [None]
  - SWELLING FACE [None]
  - URTICARIA GENERALISED [None]
